FAERS Safety Report 6567666-1 (Version None)
Quarter: 2010Q1

REPORT INFORMATION
  Report Type: 
  Country: None (occurrence: None)
  Receive Date: 20100203
  Receipt Date: 20100126
  Transmission Date: 20100710
  Serious: Yes (Hospitalization, Other)
  Sender: FDA-Public Use
  Company Number: US-BIOGENIDEC-2010BI000435

PATIENT
  Age: 62 Year
  Sex: Male

DRUGS (32)
  1. TYSABRI [Suspect]
     Indication: MULTIPLE SCLEROSIS
     Route: 042
     Dates: start: 20061228
  2. ANTIVERT [Concomitant]
  3. BACLOFEN [Concomitant]
  4. KEPPRA [Concomitant]
  5. ARICEPT [Concomitant]
  6. REQUIP [Concomitant]
  7. TRILEPTAL [Concomitant]
  8. TRAMADOL HCL [Concomitant]
  9. BUPROPION [Concomitant]
  10. OXYBUTYNIN CHLORIDE [Concomitant]
  11. ALBUTEROL [Concomitant]
  12. RHINOCORT [Concomitant]
  13. SINGULAIR [Concomitant]
  14. LIPITOR [Concomitant]
  15. METOPROLOL SUCCINATE [Concomitant]
  16. NITROGLYCERIN [Concomitant]
  17. PROVIGIL [Concomitant]
  18. NEXIUM [Concomitant]
  19. TERAZOSIN HCL [Concomitant]
  20. LEVOTHYROXINE SODIUM [Concomitant]
  21. PIROXICAM [Concomitant]
  22. ASPIRIN [Concomitant]
  23. MUCINEX [Concomitant]
  24. MULTI-VITAMIN [Concomitant]
  25. VITAMIN C [Concomitant]
  26. VITAMIN D [Concomitant]
  27. CALCIUM PLUS D [Concomitant]
  28. QUININE SULFATE [Concomitant]
  29. PROAIR HFA [Concomitant]
  30. VOLTAREN [Concomitant]
  31. FLOMAX [Concomitant]
  32. HEP-LOCK [Concomitant]

REACTIONS (11)
  - COUGH [None]
  - DRUG EFFECT DECREASED [None]
  - HAEMORRHAGIC ANAEMIA [None]
  - HYPERTENSION [None]
  - MUSCLE HAEMORRHAGE [None]
  - PELVIC HAEMATOMA [None]
  - PLEURAL EFFUSION [None]
  - POST PROCEDURAL HAEMATURIA [None]
  - PROSTATE CANCER [None]
  - URINARY TRACT INFECTION STAPHYLOCOCCAL [None]
  - WHEEZING [None]
